FAERS Safety Report 16284724 (Version 4)
Quarter: 2020Q4

REPORT INFORMATION
  Report Type: Spontaneous
  Country: US (occurrence: US)
  Receive Date: 20190508
  Receipt Date: 20201225
  Transmission Date: 20210113
  Serious: No
  Sender: FDA-Public Use
  Company Number: US-BIOGEN-2019BI00733546

PATIENT
  Age: 46 Year
  Sex: Female

DRUGS (5)
  1. TECFIDERA [Suspect]
     Active Substance: DIMETHYL FUMARATE
     Dosage: STARTING DOSE
     Route: 048
     Dates: start: 20180205, end: 20181211
  2. TECFIDERA [Suspect]
     Active Substance: DIMETHYL FUMARATE
     Dosage: MAINTENANCE DOSE
     Route: 048
     Dates: start: 20180212
  3. TECFIDERA [Suspect]
     Active Substance: DIMETHYL FUMARATE
     Route: 048
     Dates: start: 201801
  4. TECFIDERA [Suspect]
     Active Substance: DIMETHYL FUMARATE
     Indication: MULTIPLE SCLEROSIS
     Dosage: STARTING DOSE
     Route: 048
     Dates: start: 20180205, end: 20180211
  5. TECFIDERA [Suspect]
     Active Substance: DIMETHYL FUMARATE
     Dosage: MAINTENANCE DOSE
     Route: 048
     Dates: start: 20181212, end: 20201109

REACTIONS (15)
  - Dysarthria [Not Recovered/Not Resolved]
  - Confusional state [Recovered/Resolved]
  - Abdominal discomfort [Recovered/Resolved]
  - Memory impairment [Not Recovered/Not Resolved]
  - Hypertension [Unknown]
  - Optic neuritis [Unknown]
  - Tearfulness [Unknown]
  - Amnesia [Not Recovered/Not Resolved]
  - Concussion [Recovered/Resolved]
  - Gait disturbance [Not Recovered/Not Resolved]
  - Mental impairment [Unknown]
  - Insomnia [Unknown]
  - Personality change [Recovered/Resolved]
  - Anxiety [Not Recovered/Not Resolved]
  - Fall [Recovered/Resolved]

NARRATIVE: CASE EVENT DATE: 20181201
